FAERS Safety Report 9525735 (Version 1)
Quarter: 2013Q1

REPORT INFORMATION
  Report Type: Spontaneous
  Country: US (occurrence: None)
  Receive Date: 20130314
  Receipt Date: 20130314
  Transmission Date: 20140127
  Serious: Yes (Hospitalization)
  Sender: FDA-Public Use
  Company Number: 2012BAX020032

PATIENT
  Age: 3 Year
  Sex: 0
  Weight: 11 kg

DRUGS (1)
  1. RECOMBINATE [Suspect]
     Indication: IMMUNE TOLERANCE INDUCTION
     Route: 042
     Dates: start: 20030815

REACTIONS (2)
  - Pyrexia [None]
  - Chills [None]
